FAERS Safety Report 10914659 (Version 2)
Quarter: 2015Q1

REPORT INFORMATION
  Report Type: Spontaneous
  Country: JP (occurrence: JP)
  Receive Date: 20150313
  Receipt Date: 20150330
  Transmission Date: 20150721
  Serious: Yes (Hospitalization)
  Sender: FDA-Public Use
  Company Number: JP-KERYX BIOPHARMA UK LTD-2014JP000619

PATIENT

DRUGS (2)
  1. RIONA [Suspect]
     Active Substance: FERRIC CITRATE ANHYDROUS
     Indication: HYPERPHOSPHATAEMIA
     Dosage: 250 MG, TID
     Route: 048
     Dates: start: 20140515, end: 20140924
  2. RIONA [Suspect]
     Active Substance: FERRIC CITRATE ANHYDROUS
     Dosage: 500 MG, TID
     Route: 048
     Dates: start: 20140927, end: 20141002

REACTIONS (4)
  - Gastrointestinal inflammation [Recovered/Resolved]
  - Cholelithiasis [Recovered/Resolved]
  - Abdominal distension [Recovering/Resolving]
  - Diarrhoea [Recovering/Resolving]

NARRATIVE: CASE EVENT DATE: 20140928
